FAERS Safety Report 9193133 (Version 1)
Quarter: 2013Q1

REPORT INFORMATION
  Report Type: Spontaneous
  Country: US (occurrence: None)
  Receive Date: 20120703
  Receipt Date: 20120703
  Transmission Date: 20140127
  Serious: No
  Sender: FDA-Public Use
  Company Number: PHEH2012US006131

PATIENT
  Sex: Female

DRUGS (2)
  1. GILENYA (FTY) CAPSULE [Suspect]
     Route: 048
  2. TRAMADOL HYDROCHLORIDE (TRAMADOL HYDROCHLORIDE) TABLET [Concomitant]

REACTIONS (2)
  - Hypoaesthesia [None]
  - Pruritus [None]
